FAERS Safety Report 13395093 (Version 1)
Quarter: 2017Q2

REPORT INFORMATION
  Report Type: Spontaneous
  Country: US (occurrence: US)
  Receive Date: 20170403
  Receipt Date: 20170403
  Transmission Date: 20170830
  Serious: Yes (Death, Other)
  Sender: FDA-Public Use
  Company Number: US-ZYDUS-014468

PATIENT
  Age: 79 Year
  Sex: Female

DRUGS (1)
  1. GABAPENTIN. [Suspect]
     Active Substance: GABAPENTIN
     Indication: PRODUCT USED FOR UNKNOWN INDICATION
     Route: 065

REACTIONS (8)
  - Pneumonia [Fatal]
  - Fall [Unknown]
  - Nervous system disorder [Recovering/Resolving]
  - Toxicity to various agents [Unknown]
  - Asthenia [Unknown]
  - Septic shock [Fatal]
  - Cardiovascular disorder [Fatal]
  - Dizziness [Recovering/Resolving]
